FAERS Safety Report 6884667-4 (Version None)
Quarter: 2010Q3

REPORT INFORMATION
  Report Type: 
  Country: None (occurrence: None)
  Receive Date: 20100727
  Receipt Date: 20100719
  Transmission Date: 20110219
  Serious: Yes (Other)
  Sender: FDA-Public Use
  Company Number: DSA_43398_2010

PATIENT
  Sex: Female

DRUGS (13)
  1. XENAZINE [Suspect]
     Indication: DYSKINESIA
     Dosage: (12.5 MG QD ORAL), (12.5 MG BID ORAL)
     Route: 048
     Dates: start: 20100615, end: 20100621
  2. XENAZINE [Suspect]
     Indication: MEIGE'S SYNDROME
     Dosage: (12.5 MG QD ORAL), (12.5 MG BID ORAL)
     Route: 048
     Dates: start: 20100615, end: 20100621
  3. XENAZINE [Suspect]
     Indication: TARDIVE DYSKINESIA
     Dosage: (12.5 MG QD ORAL), (12.5 MG BID ORAL)
     Route: 048
     Dates: start: 20100615, end: 20100621
  4. XENAZINE [Suspect]
     Indication: DYSKINESIA
     Dosage: (12.5 MG QD ORAL), (12.5 MG BID ORAL)
     Route: 048
     Dates: start: 20100622, end: 20100627
  5. XENAZINE [Suspect]
     Indication: MEIGE'S SYNDROME
     Dosage: (12.5 MG QD ORAL), (12.5 MG BID ORAL)
     Route: 048
     Dates: start: 20100622, end: 20100627
  6. XENAZINE [Suspect]
     Indication: TARDIVE DYSKINESIA
     Dosage: (12.5 MG QD ORAL), (12.5 MG BID ORAL)
     Route: 048
     Dates: start: 20100622, end: 20100627
  7. HYDRALAZINE HCL [Concomitant]
  8. ZOLPIDEM [Concomitant]
  9. CLONAZEPAM [Concomitant]
  10. TAMOXIFEN [Concomitant]
  11. BUPROPION HCL [Concomitant]
  12. METOPROLOL [Concomitant]
  13. CITALOPRAM [Concomitant]

REACTIONS (6)
  - DIZZINESS [None]
  - DRUG INEFFECTIVE [None]
  - MEMORY IMPAIRMENT [None]
  - MIDDLE INSOMNIA [None]
  - NIGHTMARE [None]
  - PSYCHOTIC DISORDER [None]
